FAERS Safety Report 7019283-7 (Version None)
Quarter: 2010Q3

REPORT INFORMATION
  Report Type: 
  Country: None (occurrence: None)
  Receive Date: 20100924
  Receipt Date: 20100916
  Transmission Date: 20110219
  Serious: Yes (Death, Life-Threatening, Hospitalization)
  Sender: FDA-Public Use
  Company Number: FKO201000395

PATIENT
  Age: 62 Year
  Sex: Male

DRUGS (1)
  1. IRINOTECAN KABI 20 MG/ML, SOLUTION A DILUER POUR PERFUSION (IRINOTECAN [Suspect]
     Indication: COLON CANCER

REACTIONS (7)
  - DEHYDRATION [None]
  - DIARRHOEA [None]
  - GASTROINTESTINAL BACTERIAL INFECTION [None]
  - GENERAL PHYSICAL HEALTH DETERIORATION [None]
  - INTESTINAL PERFORATION [None]
  - PERITONITIS [None]
  - VOMITING [None]
